FAERS Safety Report 7465479-X (Version None)
Quarter: 2011Q2

REPORT INFORMATION
  Report Type: 
  Country: None (occurrence: None)
  Receive Date: 20110509
  Receipt Date: 20110429
  Transmission Date: 20111010
  Serious: Yes (Other)
  Sender: FDA-Public Use
  Company Number: US-ROCHE-757929

PATIENT
  Sex: Female
  Weight: 61.2 kg

DRUGS (23)
  1. ACTEMRA [Suspect]
     Route: 042
     Dates: start: 20110127, end: 20110127
  2. FLEXERIL [Concomitant]
  3. NIFEDIPINE [Concomitant]
  4. AMBIEN [Concomitant]
     Dosage: TAKEN AT BEDTIME
  5. ACTEMRA [Suspect]
     Dosage: DOSE: 100-150 MG
     Route: 042
     Dates: start: 20110421, end: 20110421
  6. AMBIEN [Concomitant]
     Indication: SOMNOLENCE
     Dosage: TAKEN AT BEDTIME
  7. PROTONIX [Concomitant]
  8. ACTEMRA [Suspect]
     Dosage: FORM: INFUSION
     Route: 042
     Dates: start: 20101221, end: 20101221
  9. ALBUTEROL [Concomitant]
     Dosage: ROUTE:PUFFER
     Route: 050
  10. ACTEMRA [Suspect]
     Route: 042
     Dates: start: 20110321, end: 20110321
  11. GABAPENTIN [Concomitant]
  12. NIACIN [Concomitant]
  13. NITROGLYCERIN [Concomitant]
     Route: 060
  14. NEURONTIN [Concomitant]
     Indication: NECK PAIN
  15. DEPO-MEDROL [Concomitant]
     Indication: PREMEDICATION
  16. ACTEMRA [Suspect]
     Route: 042
     Dates: start: 20110221, end: 20110221
  17. SYNTHROID [Concomitant]
  18. CELEBREX [Concomitant]
  19. METOPROLOL TARTRATE [Concomitant]
     Indication: BLOOD PRESSURE
  20. METOPROLOL TARTRATE [Concomitant]
  21. SIMVASTATIN [Concomitant]
  22. PRILOSEC [Concomitant]
  23. CYMBALTA [Concomitant]
     Indication: FIBROMYALGIA
     Dosage: INDICATION: DEPRESSION

REACTIONS (9)
  - PNEUMONIA [None]
  - DIZZINESS [None]
  - BRONCHITIS [None]
  - NEURALGIA [None]
  - C-REACTIVE PROTEIN INCREASED [None]
  - HYPOAESTHESIA [None]
  - DYSKINESIA [None]
  - ANAEMIA MACROCYTIC [None]
  - ABDOMINAL PAIN UPPER [None]
